FAERS Safety Report 11119526 (Version 2)
Quarter: 2015Q2

REPORT INFORMATION
  Report Type: Report from Study
  Country: BR (occurrence: BR)
  Receive Date: 20150518
  Receipt Date: 20150525
  Transmission Date: 20150821
  Serious: Yes (Other)
  Sender: FDA-Public Use
  Company Number: PHHY2015BR057110

PATIENT
  Sex: Male
  Weight: 58 kg

DRUGS (1)
  1. EXJADE [Suspect]
     Active Substance: DEFERASIROX
     Indication: IRON OVERLOAD
     Dosage: 2 DF, QD (IN THE MORNING)
     Route: 048

REACTIONS (10)
  - Wound secretion [Not Recovered/Not Resolved]
  - Diabetes mellitus [Not Recovered/Not Resolved]
  - Drug intolerance [Unknown]
  - B-cell lymphoma [Not Recovered/Not Resolved]
  - Haemorrhage [Recovered/Resolved]
  - Bone disorder [Recovering/Resolving]
  - Skin wound [Not Recovered/Not Resolved]
  - Wound infection [Not Recovered/Not Resolved]
  - Blood iron increased [Not Recovered/Not Resolved]
  - Iron metabolism disorder [Recovering/Resolving]
